FAERS Safety Report 12548095 (Version 1)
Quarter: 2016Q3

REPORT INFORMATION
  Report Type: Spontaneous
  Country: US (occurrence: None)
  Receive Date: 20160711
  Receipt Date: 20160711
  Transmission Date: 20161109
  Serious: Yes (Disabling)
  Sender: FDA-Public Use
  Company Number: None

PATIENT
  Age: 39 Year
  Sex: Female
  Weight: 94.8 kg

DRUGS (3)
  1. DEXEDRINE EXTENDED RELEASE [Concomitant]
  2. MIRENA [Suspect]
     Active Substance: LEVONORGESTREL
     Indication: CONTRACEPTION
  3. EMERGEN-C [Concomitant]
     Active Substance: VITAMINS

REACTIONS (3)
  - Alopecia [None]
  - Weight increased [None]
  - Blood pressure increased [None]

NARRATIVE: CASE EVENT DATE: 20160701
